FAERS Safety Report 7023490-7 (Version None)
Quarter: 2010Q3

REPORT INFORMATION
  Report Type: 
  Country: None (occurrence: None)
  Receive Date: 20100929
  Receipt Date: 20100929
  Transmission Date: 20110219
  Serious: No
  Sender: FDA-Public Use
  Company Number: None

PATIENT
  Sex: Male

DRUGS (1)
  1. ALBUMINAR-25 [Suspect]
     Indication: ASCITES
     Dosage: 200 ML Q WEEK X 6 MONTHS IV
     Route: 042
     Dates: start: 20100922

REACTIONS (2)
  - PRODUCT OUTER PACKAGING ISSUE [None]
  - PRODUCT PACKAGING QUANTITY ISSUE [None]
